FAERS Safety Report 6848021-3 (Version None)
Quarter: 2010Q3

REPORT INFORMATION
  Report Type: 
  Country: None (occurrence: None)
  Receive Date: 20100716
  Receipt Date: 20100705
  Transmission Date: 20110219
  Serious: Yes (Other)
  Sender: FDA-Public Use
  Company Number: GR-PFIZER INC-2010083370

PATIENT
  Age: 43 Year
  Sex: Female

DRUGS (1)
  1. XALATAN [Suspect]
     Indication: GLAUCOMA
     Dosage: UNK
     Route: 061
     Dates: start: 20100601, end: 20100601

REACTIONS (2)
  - ANAPHYLACTIC SHOCK [None]
  - INTRAOCULAR PRESSURE INCREASED [None]
